FAERS Safety Report 6079670-0 (Version None)
Quarter: 2009Q1

REPORT INFORMATION
  Report Type: 
  Country: None (occurrence: None)
  Receive Date: 20090217
  Receipt Date: 20090203
  Transmission Date: 20090719
  Serious: Yes (Other)
  Sender: FDA-Public Use
  Company Number: ES-JNJFOC-20090202807

PATIENT
  Sex: Female

DRUGS (9)
  1. REMICADE [Suspect]
     Indication: RHEUMATOID ARTHRITIS
     Route: 042
  2. CORTICOID [Concomitant]
  3. METHOTREXATE [Concomitant]
  4. ACFOL [Concomitant]
  5. CALCIUM WITH VITAMIN D [Concomitant]
  6. ANTICOAGULANT [Concomitant]
  7. OPIOID [Concomitant]
  8. IECA [Concomitant]
  9. DIGOXIN [Concomitant]

REACTIONS (1)
  - MENINGIOMA [None]
